FAERS Safety Report 18462735 (Version 1)
Quarter: 2020Q4

REPORT INFORMATION
  Report Type: Other
  Country: GB (occurrence: GB)
  Receive Date: 20201104
  Receipt Date: 20201104
  Transmission Date: 20210114
  Serious: No
  Sender: FDA-Public Use
  Company Number: GB-LUPIN PHARMACEUTICALS INC.-2019-06295

PATIENT
  Age: 27 Year
  Sex: Female
  Weight: 70 kg

DRUGS (37)
  1. AMOXICILLIN. [Suspect]
     Active Substance: AMOXICILLIN
     Indication: PRODUCT USED FOR UNKNOWN INDICATION
     Dosage: 500 MILLIGRAM
     Route: 065
     Dates: start: 20161207
  2. DESOGESTREL [Concomitant]
     Active Substance: DESOGESTREL
     Indication: ILL-DEFINED DISORDER
     Dosage: UNK, TAKE ONE DAILY
     Route: 065
     Dates: start: 20190531, end: 20190531
  3. RANITIDINE. [Concomitant]
     Active Substance: RANITIDINE
     Indication: ILL-DEFINED DISORDER
     Dosage: 1 DOSAGE FORM, BID
     Route: 065
     Dates: start: 20180628, end: 20190503
  4. CERAZETTE [DESOGESTREL] [Concomitant]
     Active Substance: DESOGESTREL
     Indication: ILL-DEFINED DISORDER
     Dosage: TAKE ONE DAILY
     Route: 065
     Dates: start: 20190531
  5. SALAMOL [SALBUTAMOL] [Concomitant]
     Indication: ILL-DEFINED DISORDER
     Dosage: 2 DOSAGE FORM AS NEEDED
     Dates: start: 20030715, end: 20190503
  6. CLARITHROMYCIN. [Suspect]
     Active Substance: CLARITHROMYCIN
     Indication: PRODUCT USED FOR UNKNOWN INDICATION
     Dosage: 500 MILLIGRAM
     Route: 065
     Dates: start: 20161207
  7. DIPROSALIC [Concomitant]
     Active Substance: BETAMETHASONE DIPROPIONATE
     Indication: ILL-DEFINED DISORDER
     Dosage: APPLY THINLY ONCE A DAY TO FEET FOR 2W AND CONT
     Route: 065
     Dates: start: 20180627
  8. CETIRIZINE [Concomitant]
     Active Substance: CETIRIZINE HYDROCHLORIDE
     Indication: ORAL ALLERGY SYNDROME
     Dosage: TAKE ONE UP TO 4 X DAILY
     Route: 065
     Dates: start: 20180302
  9. ECONAZOLE. [Concomitant]
     Active Substance: ECONAZOLE NITRATE
     Indication: ILL-DEFINED DISORDER
     Dosage: APPLY EVERY 12 HRS
     Route: 065
     Dates: start: 19960216, end: 20190503
  10. TACROLIMUS. [Concomitant]
     Active Substance: TACROLIMUS
     Indication: ILL-DEFINED DISORDER
     Dosage: APPLY THINLY ONCE A DAY FOR 6W THEN 2X WEEKLY
     Route: 065
     Dates: start: 20180302
  11. SALBUTAMOL [Concomitant]
     Active Substance: ALBUTEROL
     Indication: ILL-DEFINED DISORDER
     Dosage: TWO PUFFS 3 TIMES/DAY
     Route: 065
     Dates: start: 19931011, end: 20190503
  12. CLOBETASONE BUTYRATE [Concomitant]
     Active Substance: CLOBETASONE BUTYRATE
     Indication: ILL-DEFINED DISORDER
     Dosage: UNK,APPLY AS DIRECTED
     Route: 065
     Dates: start: 20021202, end: 20190503
  13. CETOMACROGOL 1000 [Concomitant]
     Active Substance: COSMETICS
     Indication: ILL-DEFINED DISORDER
     Dosage: USE FREQUENTLY
     Route: 065
     Dates: start: 20090630, end: 20190503
  14. OVRANETTE [Concomitant]
     Active Substance: ETHINYL ESTRADIOL\LEVONORGESTREL
     Indication: ILL-DEFINED DISORDER
     Dosage: TAKE ONE AS DIRECTED
     Route: 065
     Dates: start: 20090603, end: 20190503
  15. OILATUM [LIGHT LIQUID PARAFFIN;WHITE SOFT PARAFFIN] [Concomitant]
     Indication: ILL-DEFINED DISORDER
     Dosage: UNK, USE AS NEEDED
     Route: 065
     Dates: start: 20020103, end: 20190503
  16. OPTICROM [Concomitant]
     Active Substance: CROMOLYN SODIUM
     Indication: ILL-DEFINED DISORDER
     Dosage: 1 DROP, QID
     Route: 065
     Dates: start: 20000615, end: 20190503
  17. EUMOVATE [Concomitant]
     Active Substance: CLOBETASONE BUTYRATE
     Indication: ILL-DEFINED DISORDER
     Dosage: APPLY 3 TIMES/DAY TO ARMS
     Route: 065
     Dates: start: 20020103, end: 20190503
  18. LORATADINE. [Concomitant]
     Active Substance: LORATADINE
     Indication: ILL-DEFINED DISORDER
     Dosage: 5 MILLILITER, QD
     Route: 065
     Dates: start: 20000510, end: 20190503
  19. BECONASE AQ [Concomitant]
     Active Substance: BECLOMETHASONE DIPROPIONATE MONOHYDRATE
     Indication: ILL-DEFINED DISORDER
     Dosage: TWO PUFFS TWICE DAILY
     Route: 065
     Dates: start: 20050509, end: 20190503
  20. DIPROBASE [PARAFFIN, LIQUID;WHITE SOFT PARAFFIN] [Concomitant]
     Indication: ILL-DEFINED DISORDER
     Dosage: UNK, APPLY AS NEEDED
     Route: 065
     Dates: start: 20031222, end: 20190503
  21. PARAFFIN SOFT [Concomitant]
     Active Substance: PARAFFIN
     Indication: ILL-DEFINED DISORDER
     Dosage: UNK, APPLY FREQUENTLY AND LIBERALLY TO DRY SKIN
     Route: 065
     Dates: start: 20180302, end: 20190425
  22. SODIUM CROMOGLICATE [Concomitant]
     Active Substance: CROMOLYN SODIUM
     Indication: ILL-DEFINED DISORDER
     Dosage: 1 DROP, QID
     Route: 065
     Dates: start: 19980605, end: 20190503
  23. LOESTRIN NOS [Concomitant]
     Active Substance: ETHINYL ESTRADIOL\NORETHINDRONE ACETATE
     Indication: ILL-DEFINED DISORDER
     Dosage: 1 DOSAGE FORM, QD, FOR 21 DAYS; SUBSEQUENT COURSE
     Route: 065
     Dates: start: 20180910, end: 20190503
  24. MONTELUKAST [Concomitant]
     Active Substance: MONTELUKAST SODIUM
     Indication: ILL-DEFINED DISORDER
     Dosage: 1 DOSAGE FORM, AT NIGHT
     Route: 065
     Dates: start: 20180628, end: 20190503
  25. LANSOPRAZOLE. [Suspect]
     Active Substance: LANSOPRAZOLE
     Indication: PRODUCT USED FOR UNKNOWN INDICATION
     Dosage: 30 MILLIGRAM
     Route: 065
     Dates: start: 20161207
  26. CALCIPOTRIOL [Concomitant]
     Active Substance: CALCIPOTRIENE
     Indication: ILL-DEFINED DISORDER
     Dosage: UNK, APPLY TWICE A DAY
     Route: 065
     Dates: start: 20180302
  27. FEXOFENADINE [Concomitant]
     Active Substance: FEXOFENADINE HYDROCHLORIDE
     Indication: ILL-DEFINED DISORDER
     Dosage: TAKE ON DAILY
     Route: 065
     Dates: start: 20090630, end: 20190503
  28. AMOXICILLIN. [Concomitant]
     Active Substance: AMOXICILLIN
     Indication: ILL-DEFINED DISORDER
     Dosage: 5 MILLILITER, TID
     Route: 065
     Dates: start: 19921220, end: 20190503
  29. CLENIL MODULITE [Concomitant]
     Active Substance: BECLOMETHASONE DIPROPIONATE
     Indication: ILL-DEFINED DISORDER
     Dosage: 2 DOSAGE FORM, BID
     Dates: start: 20100520, end: 20190503
  30. HYDROCORTISONE. [Concomitant]
     Active Substance: HYDROCORTISONE
     Indication: ILL-DEFINED DISORDER
     Dosage: UNK UNK, BID
     Route: 065
     Dates: start: 20020103, end: 20190503
  31. BETAMETHASONE DIPROPIONATE. [Concomitant]
     Active Substance: BETAMETHASONE DIPROPIONATE
     Indication: ILL-DEFINED DISORDER
     Dosage: APPLY A FEW DROPS ONCE A DAY ON SCALP
     Route: 061
     Dates: start: 20180628, end: 20190503
  32. BECLAZONE [BECLOMETASONE DIPROPIONATE] [Concomitant]
     Indication: ILL-DEFINED DISORDER
     Dosage: 2 DOSAGE FORM, BID
     Dates: start: 20041007, end: 20190503
  33. BETAMETHASONE VALERATE. [Concomitant]
     Active Substance: BETAMETHASONE VALERATE
     Indication: ILL-DEFINED DISORDER
     Dosage: UNK, APPLY THINLY TWICE A DAY MDU FOR 2 WEEKS
     Route: 065
     Dates: start: 20190523
  34. CHLORAMPHENICOL [Concomitant]
     Active Substance: CHLORAMPHENICOL
     Indication: ILL-DEFINED DISORDER
     Dosage: 1 DROP, QID
     Route: 065
     Dates: start: 19930705, end: 20190503
  35. LIDOCAINE. [Concomitant]
     Active Substance: LIDOCAINE
     Indication: ILL-DEFINED DISORDER
     Dosage: UNK, APPLY AS DIRECTED
     Route: 065
     Dates: start: 20070730, end: 20190503
  36. BECLOMETASONE [Concomitant]
     Active Substance: BECLOMETHASONE DIPROPIONATE
     Indication: ILL-DEFINED DISORDER
     Dosage: 2 DOSAGE FORM, BID
     Dates: start: 20000512, end: 20190503
  37. LACTULOSE. [Concomitant]
     Active Substance: LACTULOSE
     Indication: ILL-DEFINED DISORDER
     Dosage: 5-10ML, BID
     Route: 065
     Dates: start: 20021202, end: 20190503

REACTIONS (1)
  - Nausea [Recovered/Resolved]

NARRATIVE: CASE EVENT DATE: 20190402
